FAERS Safety Report 24738979 (Version 1)
Quarter: 2024Q4

REPORT INFORMATION
  Report Type: Spontaneous
  Country: US (occurrence: US)
  Receive Date: 20241216
  Receipt Date: 20241216
  Transmission Date: 20250115
  Serious: No
  Sender: ALVOGEN
  Company Number: US-ALVOGEN-2024094719

PATIENT
  Sex: Female

DRUGS (1)
  1. FENTANYL [Suspect]
     Active Substance: FENTANYL
     Indication: Pain
     Dosage: STRENGTH: 100 MCG/HR?EXPIRATION DATE: FEB-2026?GTIN 00347781428471?EXPIRATION DATE: UU-FEB-2026.
     Route: 062

REACTIONS (11)
  - Withdrawal syndrome [Unknown]
  - Diarrhoea [Unknown]
  - Malaise [Unknown]
  - Device adhesion issue [Unknown]
  - Device malfunction [Unknown]
  - Drug effect less than expected [Unknown]
  - Wrong technique in device usage process [Unknown]
  - Device defective [Unknown]
  - Device issue [Unknown]
  - Product physical consistency issue [Unknown]
  - Product use issue [Unknown]
